FAERS Safety Report 24287535 (Version 1)
Quarter: 2024Q3

REPORT INFORMATION
  Report Type: Spontaneous
  Country: US (occurrence: None)
  Receive Date: 20240904
  Receipt Date: 20240904
  Transmission Date: 20241016
  Serious: Yes (Hospitalization)
  Sender: Public
  Company Number: None

PATIENT
  Age: 82 Year
  Sex: Male

DRUGS (11)
  1. PIQRAY [Suspect]
     Active Substance: ALPELISIB
     Indication: Breast cancer
     Route: 048
     Dates: start: 20240801
  2. LOPERAMIDE [Concomitant]
     Active Substance: LOPERAMIDE
  3. SENNA [Concomitant]
     Active Substance: SENNA LEAF\SENNOSIDES\SENNOSIDES A AND B
  4. ACETAMINOPHEN [Concomitant]
     Active Substance: ACETAMINOPHEN
  5. ALPRAZOLAM [Concomitant]
     Active Substance: ALPRAZOLAM
  6. LAC-HYDRIN 12% CREAM [Concomitant]
  7. ASPIRIN [Concomitant]
     Active Substance: ASPIRIN
  8. CALCIUM 600+D [Concomitant]
  9. MIDODRINE [Concomitant]
  10. NITROSTAT [Concomitant]
     Active Substance: NITROGLYCERIN
  11. SERTRALINE [Concomitant]

REACTIONS (5)
  - Therapy interrupted [None]
  - Diarrhoea [None]
  - Gastrointestinal disorder [None]
  - Oral disorder [None]
  - Internal haemorrhage [None]

NARRATIVE: CASE EVENT DATE: 20240903
